FAERS Safety Report 12939062 (Version 2)
Quarter: 2017Q1

REPORT INFORMATION
  Report Type: Report from Study
  Country: US (occurrence: US)
  Receive Date: 20161115
  Receipt Date: 20170224
  Transmission Date: 20170428
  Serious: No
  Sender: FDA-Public Use
  Company Number: US-ALEXION PHARMACEUTICALS INC.-A201608711

PATIENT
  Sex: Female

DRUGS (3)
  1. SOLIRIS [Suspect]
     Active Substance: ECULIZUMAB
     Indication: PAROXYSMAL NOCTURNAL HAEMOGLOBINURIA
     Dosage: 600 MG, UNK
     Route: 042
  2. CYCLOSPORINE. [Concomitant]
     Active Substance: CYCLOSPORINE
     Indication: APLASTIC ANAEMIA
     Route: 065
  3. ATG                                /00575401/ [Concomitant]
     Active Substance: LAPINE T-LYMPHOCYTE IMMUNE GLOBULIN
     Indication: APLASTIC ANAEMIA
     Route: 065

REACTIONS (20)
  - Back pain [Unknown]
  - Chest pain [Unknown]
  - Nasopharyngitis [Unknown]
  - Influenza [Unknown]
  - Sinus disorder [Unknown]
  - Gingival swelling [Unknown]
  - Headache [Not Recovered/Not Resolved]
  - Pain [Unknown]
  - Contusion [Unknown]
  - Neck pain [Unknown]
  - Oropharyngeal pain [Unknown]
  - Immune system disorder [Unknown]
  - Sensation of foreign body [Unknown]
  - Nausea [Unknown]
  - Influenza like illness [Unknown]
  - Malaise [Unknown]
  - Nasal congestion [Unknown]
  - Pyrexia [Unknown]
  - Skin discolouration [Unknown]
  - Gingival pain [Unknown]
